FAERS Safety Report 4971574-7 (Version None)
Quarter: 2006Q2

REPORT INFORMATION
  Report Type: 
  Country: None (occurrence: None)
  Receive Date: 20060411
  Receipt Date: 20060411
  Transmission Date: 20061013
  Serious: Yes (Death)
  Sender: FDA-Public Use
  Company Number: None

PATIENT
  Sex: Male
  Weight: 76.4 kg

DRUGS (4)
  1. CASODEX [Suspect]
     Indication: PROSTATE CANCER
     Dosage: 50MG
     Route: 048
     Dates: start: 20040323, end: 20060327
  2. CASODEX [Suspect]
     Indication: PROSTATE CANCER
     Dosage: 50MG
     Route: 048
     Dates: start: 20060130
  3. ZOLADEX [Suspect]
     Dosage: 10.8MG
     Route: 058
     Dates: start: 20040323, end: 20060130
  4. ZOLADEX [Suspect]
     Dosage: 10.8MG
     Route: 058
     Dates: start: 20060130

REACTIONS (5)
  - ARTERIOSCLEROSIS [None]
  - CONDITION AGGRAVATED [None]
  - CONVULSION [None]
  - EPILEPSY [None]
  - TREATMENT NONCOMPLIANCE [None]
